FAERS Safety Report 17832299 (Version 3)
Quarter: 2022Q3

REPORT INFORMATION
  Report Type: Other
  Country: US (occurrence: None)
  Receive Date: 20200527
  Receipt Date: 20220811
  Transmission Date: 20221027
  Serious: Yes (Other)
  Sender: FDA-Public Use
  Company Number: US-ROCHE-2438094

PATIENT
  Age: 76 Year
  Sex: Female
  Weight: 53.118 kg

DRUGS (6)
  1. OCREVUS [Suspect]
     Active Substance: OCRELIZUMAB
     Indication: Relapsing-remitting multiple sclerosis
     Dosage: NEXT DOSE: 02/OCT/2019?ON 30/SEP/2020, SHE RECEIVED HER MOST RECENT INFUSION.
     Route: 042
     Dates: start: 20190925
  2. OCREVUS [Suspect]
     Active Substance: OCRELIZUMAB
     Indication: Multiple sclerosis
  3. BENADRYL [Suspect]
     Active Substance: DIPHENHYDRAMINE HYDROCHLORIDE
     Indication: Product used for unknown indication
     Route: 065
     Dates: start: 20190925, end: 20190925
  4. AMPYRA [Concomitant]
     Active Substance: DALFAMPRIDINE
     Route: 048
  5. BACLOFEN [Concomitant]
     Active Substance: BACLOFEN
     Route: 048
  6. DIMETHYL FUMARATE [Concomitant]
     Active Substance: DIMETHYL FUMARATE

REACTIONS (10)
  - Dysstasia [Recovered/Resolved]
  - Anxiety [Unknown]
  - Stress [Unknown]
  - Feeling abnormal [Recovered/Resolved]
  - Muscular weakness [Unknown]
  - Relapsing-remitting multiple sclerosis [Unknown]
  - Drug ineffective [Unknown]
  - Gait disturbance [Unknown]
  - Fungal infection [Recovered/Resolved]
  - Hip fracture [Not Recovered/Not Resolved]

NARRATIVE: CASE EVENT DATE: 20190925
